FAERS Safety Report 22249212 (Version 1)
Quarter: 2023Q2

REPORT INFORMATION
  Report Type: Spontaneous
  Country: US (occurrence: US)
  Receive Date: 20230425
  Receipt Date: 20230425
  Transmission Date: 20230722
  Serious: Yes (Other)
  Sender: FDA-Public Use
  Company Number: US-ROCHE-3330944

PATIENT
  Age: 69 Year
  Sex: Female

DRUGS (11)
  1. CAPECITABINE [Suspect]
     Active Substance: CAPECITABINE
     Indication: Breast cancer metastatic
     Route: 048
  2. HERCEPTIN [Suspect]
     Active Substance: TRASTUZUMAB
     Indication: Breast cancer metastatic
  3. TUKYSA [Suspect]
     Active Substance: TUCATINIB
     Indication: Breast cancer metastatic
  4. IMODIUM [Concomitant]
     Active Substance: LOPERAMIDE HYDROCHLORIDE
  5. LOMOTIL [Concomitant]
     Active Substance: ATROPINE SULFATE\DIPHENOXYLATE HYDROCHLORIDE
  6. CEPHALEXIN [Concomitant]
     Active Substance: CEPHALEXIN
     Dosage: BID?DAILY DOSE: 100 MILLIGRAM
  7. MUPIROCIN [Concomitant]
     Active Substance: MUPIROCIN
  8. DOXYCYCLINE [Concomitant]
     Active Substance: DOXYCYCLINE
  9. COREG [Concomitant]
     Active Substance: CARVEDILOL
  10. FLEXERIL [Concomitant]
     Active Substance: CYCLOBENZAPRINE HYDROCHLORIDE
  11. TELMISARTAN [Concomitant]
     Active Substance: TELMISARTAN

REACTIONS (12)
  - Postoperative wound infection [Unknown]
  - Palmar-plantar erythrodysaesthesia syndrome [Unknown]
  - Diarrhoea [Unknown]
  - Cyst [Unknown]
  - Weight decreased [Unknown]
  - Rash [Unknown]
  - Weight increased [Unknown]
  - Melanocytic naevus [Unknown]
  - Dysplasia [Unknown]
  - Melanocytic naevus [Unknown]
  - Back pain [Unknown]
  - Rib fracture [Unknown]

NARRATIVE: CASE EVENT DATE: 20210909
